FAERS Safety Report 9278996 (Version 1)
Quarter: 2013Q2

REPORT INFORMATION
  Report Type: Report from Study
  Country: ZA (occurrence: ZA)
  Receive Date: 20130508
  Receipt Date: 20130508
  Transmission Date: 20140414
  Serious: Yes (Other)
  Sender: FDA-Public Use
  Company Number: ZA-GLAXOSMITHKLINE-B0889130A

PATIENT
  Age: 39 Year
  Sex: Female

DRUGS (1)
  1. RETIGABINE [Suspect]
     Indication: PARTIAL SEIZURES
     Dosage: 900MG PER DAY
     Route: 048
     Dates: start: 20080312

REACTIONS (1)
  - Retinal degeneration [Not Recovered/Not Resolved]
